FAERS Safety Report 25249940 (Version 2)
Quarter: 2025Q3

REPORT INFORMATION
  Report Type: Report from Study
  Country: US (occurrence: US)
  Receive Date: 20250429
  Receipt Date: 20250929
  Transmission Date: 20251021
  Serious: Yes (Other)
  Sender: SUNOVION
  Company Number: US-SMPA-2025SPA004749

PATIENT
  Age: 76 Year
  Sex: Male

DRUGS (3)
  1. ORGOVYX [Suspect]
     Active Substance: RELUGOLIX
     Indication: Prostate cancer
     Dosage: 360 MG, SINGLE
     Route: 048
     Dates: start: 20240606, end: 20240606
  2. ORGOVYX [Suspect]
     Active Substance: RELUGOLIX
     Dosage: 120 MG, QD
     Route: 048
     Dates: start: 20240607
  3. XTANDI [Concomitant]
     Active Substance: ENZALUTAMIDE

REACTIONS (6)
  - Pulmonary oedema [Recovering/Resolving]
  - Bone cancer [Unknown]
  - Bradykinesia [Unknown]
  - Hot flush [Unknown]
  - Asthenia [Unknown]
  - Musculoskeletal discomfort [Unknown]
